FAERS Safety Report 5999895-X (Version None)
Quarter: 2008Q4

REPORT INFORMATION
  Report Type: 
  Country: None (occurrence: None)
  Receive Date: 20081215
  Receipt Date: 20081203
  Transmission Date: 20090506
  Serious: Yes (Other)
  Sender: FDA-Public Use
  Company Number: PHHY2008JP30696

PATIENT

DRUGS (3)
  1. DIOVAN [Suspect]
     Dosage: 40 MG
     Route: 048
  2. DIOVAN [Suspect]
     Dosage: 80 MG
     Route: 048
  3. CILNIDIPINE [Concomitant]
     Dosage: 5 MG

REACTIONS (4)
  - ATRIOVENTRICULAR BLOCK [None]
  - HYPERKALAEMIA [None]
  - RENAL IMPAIRMENT [None]
  - VOMITING [None]
